FAERS Safety Report 6152668-X (Version None)
Quarter: 2009Q2

REPORT INFORMATION
  Report Type: 
  Country: None (occurrence: None)
  Receive Date: 20090413
  Receipt Date: 20090330
  Transmission Date: 20091009
  Serious: Yes (Other)
  Sender: FDA-Public Use
  Company Number: GB-ROCHE-625168

PATIENT
  Sex: Male
  Weight: 67.6 kg

DRUGS (3)
  1. CAPECITABINE [Suspect]
     Indication: RECTAL CANCER
     Route: 065
     Dates: start: 20080314, end: 20080325
  2. OXALIPLATIN [Suspect]
     Indication: RECTAL CANCER
     Route: 065
     Dates: start: 20080314, end: 20080314
  3. DIHYDROCODEINE BITARTRATE INJ [Concomitant]
     Dosage: TOTAL DAILY DOSE: 30MG PRN UP TO 4 TIMES DAILY.
     Dates: start: 20080325

REACTIONS (2)
  - DEEP VEIN THROMBOSIS [None]
  - EMBOLISM [None]
